FAERS Safety Report 14296437 (Version 4)
Quarter: 2018Q1

REPORT INFORMATION
  Report Type: Spontaneous
  Country: US (occurrence: US)
  Receive Date: 20171218
  Receipt Date: 20180315
  Transmission Date: 20180509
  Serious: No
  Sender: FDA-Public Use
  Company Number: US-TAKEDA-2017MPI011209

PATIENT
  Age: 67 Year
  Sex: Female
  Weight: 68.48 kg

DRUGS (2)
  1. NINLARO [Suspect]
     Active Substance: IXAZOMIB CITRATE
     Indication: BREAST CANCER METASTATIC
  2. NINLARO [Suspect]
     Active Substance: IXAZOMIB CITRATE
     Indication: PLASMA CELL MYELOMA
     Dosage: 4 MG, 1/WEEK
     Route: 048
     Dates: start: 20171114, end: 20180302

REACTIONS (12)
  - Bone pain [Unknown]
  - Skin exfoliation [Unknown]
  - Liver function test increased [Unknown]
  - Pain in extremity [Unknown]
  - Diarrhoea [Unknown]
  - Fatigue [Not Recovered/Not Resolved]
  - Rash macular [Unknown]
  - Back pain [Unknown]
  - Hot flush [Unknown]
  - Muscular weakness [Unknown]
  - Stomatitis [Unknown]
  - Constipation [Unknown]

NARRATIVE: CASE EVENT DATE: 20180306
